FAERS Safety Report 15337286 (Version 1)
Quarter: 2018Q4

REPORT INFORMATION
  Report Type: Spontaneous
  Country: US (occurrence: US)
  Receive Date: 20180831
  Receipt Date: 20180831
  Transmission Date: 20190204
  Serious: No
  Sender: FDA-Public Use
  Company Number: US-GLENMARK PHARMACEUTICALS-2018GMK036209

PATIENT

DRUGS (3)
  1. CALCIPOTRIENE CREAM 0.005% [Suspect]
     Active Substance: CALCIPOTRIENE
     Indication: PRURITUS
     Dosage: 2 - 4 TIMES A DAY
     Route: 061
     Dates: end: 20180618
  2. CORTISONE [Concomitant]
     Active Substance: CORTISONE\HYDROCORTISONE
     Indication: PRURITUS
     Dosage: UNK
     Route: 065
  3. DOXE [Concomitant]
     Indication: PRURITUS
     Dosage: UNK, (3 TO 4X DAILY)
     Route: 061

REACTIONS (2)
  - Product use in unapproved indication [Unknown]
  - No adverse event [Unknown]
